FAERS Safety Report 7357641-1 (Version None)
Quarter: 2011Q1

REPORT INFORMATION
  Report Type: 
  Country: None (occurrence: None)
  Receive Date: 20110317
  Receipt Date: 20110310
  Transmission Date: 20110831
  Serious: Yes (Other)
  Sender: FDA-Public Use
  Company Number: US-ELI_LILLY_AND_COMPANY-US201101002484

PATIENT
  Age: 84 Year
  Sex: Female

DRUGS (1)
  1. FORTEO [Suspect]
     Indication: OSTEOPOROSIS

REACTIONS (7)
  - DIZZINESS [None]
  - VISUAL ACUITY REDUCED [None]
  - MACULAR DEGENERATION [None]
  - PAIN IN EXTREMITY [None]
  - ARTHRALGIA [None]
  - MIDDLE INSOMNIA [None]
  - GLAUCOMA [None]
